FAERS Safety Report 14459133 (Version 2)
Quarter: 2021Q1

REPORT INFORMATION
  Report Type: Spontaneous
  Country: US (occurrence: US)
  Receive Date: 20180130
  Receipt Date: 20210125
  Transmission Date: 20210419
  Serious: No
  Sender: FDA-Public Use
  Company Number: US-ACORDA-ACO_138126_2017

PATIENT
  Age: 35 Year
  Sex: Female

DRUGS (5)
  1. DALFAMPRIDINE. [Suspect]
     Active Substance: DALFAMPRIDINE
     Indication: GAIT DISTURBANCE
     Dosage: 10 MILLIGRAM, BID (Q12H)
     Route: 048
  2. GILENYA [Suspect]
     Active Substance: FINGOLIMOD HYDROCHLORIDE
     Indication: PRODUCT USED FOR UNKNOWN INDICATION
     Dosage: UNK
     Route: 065
  3. AMPYRA [Suspect]
     Active Substance: DALFAMPRIDINE
     Indication: PRODUCT USED FOR UNKNOWN INDICATION
     Dosage: 10 MG, Q 12 HRS
     Route: 048
     Dates: start: 201606
  4. PLEGRIDY [Suspect]
     Active Substance: PEGINTERFERON BETA-1A
     Dosage: UNK
     Route: 065
  5. PLEGRIDY [Suspect]
     Active Substance: PEGINTERFERON BETA-1A
     Indication: MULTIPLE SCLEROSIS
     Dosage: 125 MICROGRAM, Q14 DAYS
     Route: 058

REACTIONS (8)
  - Lymphopenia [Unknown]
  - Fatigue [Unknown]
  - Lymphocyte count abnormal [Unknown]
  - Lymphocyte percentage abnormal [Unknown]
  - Muscular weakness [Unknown]
  - Gait disturbance [Unknown]
  - White blood cell count abnormal [Unknown]
  - Lethargy [Unknown]

NARRATIVE: CASE EVENT DATE: 201612
